FAERS Safety Report 9415411 (Version 1)
Quarter: 2013Q3

REPORT INFORMATION
  Report Type: Spontaneous
  Country: US (occurrence: US)
  Receive Date: 20130723
  Receipt Date: 20130723
  Transmission Date: 20140515
  Serious: No
  Sender: FDA-Public Use
  Company Number: US-PFIZER INC-2013212142

PATIENT
  Age: 60 Year
  Sex: Male

DRUGS (2)
  1. XALKORI [Suspect]
     Indication: BRONCHIAL CARCINOMA
     Dosage: 250 MG, 2X/DAY
     Route: 048
     Dates: start: 20130624
  2. XALKORI [Suspect]
     Indication: LUNG NEOPLASM MALIGNANT

REACTIONS (2)
  - Vitreous floaters [Unknown]
  - Pain in extremity [Unknown]
